FAERS Safety Report 25968090 (Version 1)
Quarter: 2025Q4

REPORT INFORMATION
  Report Type: Spontaneous
  Country: EU (occurrence: EU)
  Receive Date: 20251028
  Receipt Date: 20251028
  Transmission Date: 20260117
  Serious: Yes (Other)
  Sender: BIOGEN
  Company Number: EU-BIOGEN-2087864

PATIENT
  Age: 52 Year
  Sex: Female

DRUGS (1)
  1. SKYCLARYS [Suspect]
     Active Substance: OMAVELOXOLONE
     Indication: Friedreich^s ataxia

REACTIONS (2)
  - N-terminal prohormone brain natriuretic peptide increased [Unknown]
  - Gamma-glutamyltransferase increased [Unknown]
